FAERS Safety Report 21907261 (Version 4)
Quarter: 2023Q2

REPORT INFORMATION
  Report Type: Spontaneous
  Country: JP (occurrence: JP)
  Receive Date: 20230125
  Receipt Date: 20230428
  Transmission Date: 20230721
  Serious: Yes (Hospitalization, Other)
  Sender: FDA-Public Use
  Company Number: JP-Teva Takeda Yakuhin-2022-JP-002745J

PATIENT
  Age: 81 Year
  Sex: Male

DRUGS (12)
  1. ESTAZOLAM [Suspect]
     Active Substance: ESTAZOLAM
     Indication: Mental disorder
     Route: 048
  2. ESTAZOLAM [Suspect]
     Active Substance: ESTAZOLAM
     Route: 048
  3. ESTAZOLAM [Suspect]
     Active Substance: ESTAZOLAM
     Route: 048
  4. CERCINE [Suspect]
     Active Substance: DIAZEPAM
     Indication: Product used for unknown indication
     Route: 048
  5. ALPRAZOLAM [Suspect]
     Active Substance: ALPRAZOLAM
     Indication: Mental disorder
     Route: 048
  6. LEVOFLOXACIN [Concomitant]
     Active Substance: LEVOFLOXACIN
     Indication: Product used for unknown indication
     Route: 048
     Dates: start: 20230117
  7. LOXOPROFEN SODIUM [Concomitant]
     Active Substance: LOXOPROFEN SODIUM
     Indication: Product used for unknown indication
     Route: 065
     Dates: end: 202110
  8. KETOPROFEN [Concomitant]
     Active Substance: KETOPROFEN
     Indication: Product used for unknown indication
     Route: 065
     Dates: end: 202110
  9. CLOXAZOLAM [Concomitant]
     Active Substance: CLOXAZOLAM
     Indication: Product used for unknown indication
     Route: 048
  10. ETHYL LOFLAZEPATE [Concomitant]
     Active Substance: ETHYL LOFLAZEPATE
     Indication: Product used for unknown indication
     Route: 048
  11. CLOTIAZEPAM [Concomitant]
     Active Substance: CLOTIAZEPAM
     Indication: Product used for unknown indication
     Route: 048
  12. TOFISOPAM [Concomitant]
     Active Substance: TOFISOPAM
     Indication: Product used for unknown indication
     Route: 065

REACTIONS (23)
  - Bladder cancer [Recovered/Resolved]
  - Arrhythmia [Unknown]
  - Abdominal pain upper [Unknown]
  - Cystitis [Unknown]
  - Urethral pain [Unknown]
  - Dry mouth [Unknown]
  - Insomnia [Unknown]
  - Physical deconditioning [Unknown]
  - Chest discomfort [Unknown]
  - Vomiting [Unknown]
  - Decreased appetite [Unknown]
  - Pollakiuria [Unknown]
  - Erythema [Unknown]
  - Dissociative disorder [Unknown]
  - Palpitations [Unknown]
  - Nausea [Unknown]
  - Somnolence [Unknown]
  - Dizziness [Unknown]
  - Therapeutic product effect decreased [Unknown]
  - Product taste abnormal [Unknown]
  - Expired product administered [Unknown]
  - Product dose omission in error [Unknown]
  - Wrong technique in product usage process [Unknown]

NARRATIVE: CASE EVENT DATE: 20200301
